FAERS Safety Report 9846106 (Version 1)
Quarter: 2014Q1

REPORT INFORMATION
  Report Type: Spontaneous
  Country: IT (occurrence: IT)
  Receive Date: 20140127
  Receipt Date: 20140127
  Transmission Date: 20141002
  Serious: Yes (Hospitalization)
  Sender: FDA-Public Use
  Company Number: IT-BAYER-2014-006907

PATIENT
  Age: 27 Year
  Sex: Female

DRUGS (6)
  1. NIFEDIPINE (CC) [Suspect]
     Indication: HYPERTENSION
     Dosage: 10 MG, UNK
     Route: 048
  2. NIFEDIPINE (CC) [Suspect]
     Indication: HYPERTENSION
     Dosage: 40 MG/DAY
     Route: 048
  3. METHYLDOPA [Concomitant]
     Indication: HYPERTENSION
     Dosage: 500 MG
     Route: 048
  4. METHYLDOPA [Concomitant]
     Indication: HYPERTENSION
     Dosage: 1500 G/DAY
     Route: 048
  5. BETAMETHASONE [BETAMETHASONE] [Concomitant]
  6. BETAMETHASONE [BETAMETHASONE] [Concomitant]

REACTIONS (3)
  - Premature delivery [None]
  - Preterm premature rupture of membranes [None]
  - Exposure during pregnancy [None]
